FAERS Safety Report 7500004-6 (Version None)
Quarter: 2011Q2

REPORT INFORMATION
  Report Type: 
  Country: None (occurrence: None)
  Receive Date: 20110517
  Receipt Date: 20110504
  Transmission Date: 20111010
  Serious: Yes (Other)
  Sender: FDA-Public Use
  Company Number: GER/UKI/11/0018192

PATIENT
  Sex: Female

DRUGS (2)
  1. DIAMORPHINE (DIAMORPHINE) [Concomitant]
  2. FLUOXETINE [Suspect]
     Indication: DEPRESSION
     Dosage: 20 MG

REACTIONS (2)
  - ABNORMAL LABOUR [None]
  - DRUG EXPOSURE DURING PREGNANCY [None]
